FAERS Safety Report 8508776-9 (Version None)
Quarter: 2012Q3

REPORT INFORMATION
  Report Type: 
  Country: None (occurrence: None)
  Receive Date: 20120713
  Receipt Date: 20120706
  Transmission Date: 20120928
  Serious: No
  Sender: FDA-Public Use
  Company Number: US-B.I. PHARMACEUTICALS,INC./RIDGEFIELD-2012-BP-10457BP

PATIENT
  Sex: Female

DRUGS (6)
  1. CARBIDOPA AND LEVODOPA [Concomitant]
  2. STALEVO 75 [Concomitant]
  3. PRADAXA [Suspect]
     Indication: ATRIAL FIBRILLATION
     Dosage: 300 MG
     Route: 048
     Dates: start: 20110630
  4. METOPROLOL SUCCINATE [Concomitant]
     Dosage: 50 MG
  5. MIRAPEX [Concomitant]
     Dosage: 4.5 MG
  6. SYNTHROID [Concomitant]
     Dosage: 137 MCG

REACTIONS (2)
  - FOREIGN BODY [None]
  - SENSATION OF FOREIGN BODY [None]
